FAERS Safety Report 10022384 (Version 3)
Quarter: 2014Q2

REPORT INFORMATION
  Report Type: Report from Study
  Country: JP (occurrence: JP)
  Receive Date: 20140319
  Receipt Date: 20140509
  Transmission Date: 20141212
  Serious: Yes (Hospitalization)
  Sender: FDA-Public Use
  Company Number: JP-TAKEDA-2014TJP003978

PATIENT
  Age: 80 Year
  Sex: Female
  Weight: 36.5 kg

DRUGS (6)
  1. ALOGLIPTIN [Suspect]
     Indication: TYPE 2 DIABETES MELLITUS
     Dosage: 25 MG, QD
     Route: 048
     Dates: start: 20121113, end: 20130423
  2. AMARYL [Concomitant]
     Indication: TYPE 2 DIABETES MELLITUS
     Dosage: 1 MG, 1 DAYS
     Route: 048
     Dates: end: 20130423
  3. PIOGLITAZONE HYDROCHLORIDE [Concomitant]
     Indication: TYPE 2 DIABETES MELLITUS
     Dosage: 15 MG, 1 DAYS
     Route: 048
     Dates: end: 20130423
  4. BEZATATE SR [Concomitant]
     Dosage: 200 MG, 1 DAYS
     Route: 048
     Dates: end: 20130423
  5. HIBON [Concomitant]
     Dosage: 40 MG, 1 DAYS
     Route: 048
     Dates: end: 20130423
  6. GASLON N OD [Concomitant]
     Dosage: 4 MG, 1 DAYS
     Route: 048
     Dates: end: 20130423

REACTIONS (1)
  - Hyperglycaemia [Recovering/Resolving]
